FAERS Safety Report 24036984 (Version 1)
Quarter: 2024Q3

REPORT INFORMATION
  Report Type: Other
  Country: US (occurrence: US)
  Receive Date: 20240701
  Receipt Date: 20240701
  Transmission Date: 20241017
  Serious: Yes (Life-Threatening, Hospitalization)
  Sender: AIRGAS
  Company Number: US-MLMSERVICE-20240613-PI097587-00253-1

PATIENT
  Age: 74 Year
  Sex: Male

DRUGS (1)
  1. OXYGEN [Suspect]
     Active Substance: OXYGEN
     Indication: Hyperbaric oxygen therapy
     Route: 055

REACTIONS (3)
  - Acute pulmonary oedema [Recovering/Resolving]
  - Hypoxia [Recovering/Resolving]
  - Respiratory acidosis [Recovering/Resolving]
